FAERS Safety Report 5592840-0 (Version None)
Quarter: 2008Q1

REPORT INFORMATION
  Report Type: 
  Country: None (occurrence: None)
  Receive Date: 20080116
  Receipt Date: 20080103
  Transmission Date: 20080703
  Serious: Yes (Hospitalization)
  Sender: FDA-Public Use
  Company Number: PHFR2007GB03656

PATIENT
  Age: 59 Year
  Sex: Female
  Weight: 66 kg

DRUGS (4)
  1. HYDROXYCHLOROQUINE [Concomitant]
     Indication: SYSTEMIC LUPUS ERYTHEMATOSUS
     Dosage: 200 MG, BID
     Route: 048
     Dates: start: 20070401
  2. LEVOTHYROXINE SODIUM [Concomitant]
     Dosage: 100MG DAILY
     Route: 048
     Dates: start: 20060901
  3. AMITRIPTYLINE HCL [Concomitant]
     Dosage: 10MG NOCTE
     Route: 048
  4. NEORAL [Suspect]
     Indication: PSORIASIS
     Dosage: 200 MG/DAY
     Route: 048
     Dates: start: 20070421

REACTIONS (5)
  - CHILLS [None]
  - FEELING COLD [None]
  - MALAISE [None]
  - TACHYCARDIA [None]
  - TREMOR [None]
